FAERS Safety Report 8610816-3 (Version None)
Quarter: 2012Q3

REPORT INFORMATION
  Report Type: 
  Country: None (occurrence: None)
  Receive Date: 20120822
  Receipt Date: 20120808
  Transmission Date: 20120928
  Serious: Yes (Hospitalization, Other)
  Sender: FDA-Public Use
  Company Number: HK-RANBAXY-2012R1-56402

PATIENT
  Age: 32 Year
  Sex: Male

DRUGS (3)
  1. MIDAZOLAM [Suspect]
     Indication: PRODUCT USED FOR UNKNOWN INDICATION
     Dosage: UNK
     Route: 065
  2. DEXTROMETHORPHAN HYDROBROMIDE [Suspect]
     Indication: PRODUCT USED FOR UNKNOWN INDICATION
     Dosage: UNK
     Route: 065
  3. KETAMINE HCL [Suspect]
     Indication: PRODUCT USED FOR UNKNOWN INDICATION
     Dosage: UNK
     Route: 065

REACTIONS (5)
  - FOLATE DEFICIENCY [None]
  - CONFUSIONAL STATE [None]
  - COORDINATION ABNORMAL [None]
  - SUBSTANCE ABUSE [None]
  - RHABDOMYOLYSIS [None]
